FAERS Safety Report 19250107 (Version 3)
Quarter: 2021Q2

REPORT INFORMATION
  Report Type: Spontaneous
  Country: AT (occurrence: AT)
  Receive Date: 20210512
  Receipt Date: 20210617
  Transmission Date: 20210717
  Serious: Yes (Death, Other)
  Sender: FDA-Public Use
  Company Number: AT-AMGEN-AUTSP2021069966

PATIENT

DRUGS (3)
  1. FIBRATE [Concomitant]
     Active Substance: UNSPECIFIED INGREDIENT
  2. REPATHA [Suspect]
     Active Substance: EVOLOCUMAB
     Indication: HYPERCHOLESTEROLAEMIA
     Dosage: 140 MILLIGRAM
     Route: 065
  3. EZETIMIBE. [Concomitant]
     Active Substance: EZETIMIBE

REACTIONS (17)
  - Cerebrovascular accident [Unknown]
  - Skin lesion [Unknown]
  - Insomnia [Unknown]
  - Pruritus [Unknown]
  - Myalgia [Unknown]
  - Rhinitis [Unknown]
  - Gastrointestinal disorder [Unknown]
  - Influenza like illness [Unknown]
  - Therapy non-responder [Unknown]
  - Ketoacidosis [Unknown]
  - Acute myocardial infarction [Unknown]
  - Transient ischaemic attack [Unknown]
  - Fatigue [Unknown]
  - Cardiovascular disorder [Fatal]
  - Arthralgia [Unknown]
  - Therapy partial responder [Unknown]
  - Adverse event [Unknown]
